FAERS Safety Report 19436241 (Version 1)
Quarter: 2021Q2

REPORT INFORMATION
  Report Type: Spontaneous
  Country: US (occurrence: US)
  Receive Date: 20210618
  Receipt Date: 20210618
  Transmission Date: 20210717
  Serious: Yes (Hospitalization, Other)
  Sender: FDA-Public Use
  Company Number: US-ASTRAZENECA-2021A527258

PATIENT
  Age: 70 Year
  Sex: Female
  Weight: 53.1 kg

DRUGS (2)
  1. CRESTOR [Suspect]
     Active Substance: ROSUVASTATIN CALCIUM
     Indication: BLOOD CHOLESTEROL ABNORMAL
     Route: 048
     Dates: start: 2003
  2. ROSUVASTATIN CALCIUM. [Suspect]
     Active Substance: ROSUVASTATIN CALCIUM
     Indication: BLOOD CHOLESTEROL ABNORMAL
     Route: 048
     Dates: start: 20210406, end: 20210414

REACTIONS (5)
  - Intracranial aneurysm [Not Recovered/Not Resolved]
  - Expired product administered [Unknown]
  - Osteoporosis [Not Recovered/Not Resolved]
  - Muscular weakness [Recovering/Resolving]
  - Colon cancer [Unknown]

NARRATIVE: CASE EVENT DATE: 2010
